FAERS Safety Report 9036175 (Version 1)
Quarter: 2013Q1

REPORT INFORMATION
  Report Type: Report from Study
  Country: US (occurrence: US)
  Receive Date: 20130129
  Receipt Date: 20130129
  Transmission Date: 20140127
  Serious: No
  Sender: FDA-Public Use
  Company Number: US-ABBOTT-12P-163-0922145-00

PATIENT
  Age: 74 Year
  Sex: Female

DRUGS (17)
  1. HUMIRA 40 MG/0.8 ML PEN [Suspect]
     Indication: PSORIASIS
     Dates: start: 20120206
  2. ATIVAN [Concomitant]
     Indication: ANXIETY
  3. CARDIZEM [Concomitant]
     Indication: HEART RATE IRREGULAR
  4. COUMADIN [Concomitant]
     Indication: ATRIAL FIBRILLATION
     Dosage: 5MG 5 DAYS/WEEK
  5. COUMADIN [Concomitant]
     Dosage: 2.5 MG 2 DAYS A WEEK
  6. VIVELLE [Concomitant]
     Indication: HORMONE REPLACEMENT THERAPY
     Dosage: DOT PATCH
  7. FLOVENT [Concomitant]
     Indication: ASTHMA
     Dosage: 1 PUFF IN AM AND 1 PUFF IN PM
  8. LASIX [Concomitant]
     Indication: PRODUCT USED FOR UNKNOWN INDICATION
  9. LIPITOR [Concomitant]
     Indication: BLOOD CHOLESTEROL INCREASED
  10. PREDNISONE [Concomitant]
     Indication: ASTHMA
  11. PRILOSEC [Concomitant]
     Indication: GASTROOESOPHAGEAL REFLUX DISEASE
  12. PROZAC [Concomitant]
     Indication: DEPRESSION
  13. XOLAIR [Concomitant]
     Indication: ASTHMA
     Dosage: SUB Q INJECTIONS EVERY OTHER WEEK
     Route: 058
  14. PENNSYLVANIA ALLERGY SHOTS [Concomitant]
     Indication: HYPERSENSITIVITY
     Dosage: 3 INJECTIONS MONTHLY
  15. FLORIDA ALLERGY SHOTS [Concomitant]
     Indication: HYPERSENSITIVITY
     Dosage: 2 INJECTIONS MONTHLY
  16. PROAIR [Concomitant]
     Indication: ASTHMA
  17. TYLENOL [Concomitant]
     Indication: HEADACHE

REACTIONS (1)
  - Injection site haemorrhage [Recovered/Resolved]
